FAERS Safety Report 6418527-X (Version None)
Quarter: 2009Q4

REPORT INFORMATION
  Report Type: 
  Country: None (occurrence: None)
  Receive Date: 20091026
  Receipt Date: 20091013
  Transmission Date: 20100525
  Serious: Yes (Other)
  Sender: FDA-Public Use
  Company Number: ADR36652009

PATIENT
  Age: 77 Year
  Sex: Male

DRUGS (7)
  1. SIMVASTATIN [Suspect]
     Indication: HYPERCHOLESTEROLAEMIA
     Dosage: 20 MG ORAL
     Route: 048
  2. ENALAPRIL [Concomitant]
  3. PLAVIX [Concomitant]
  4. TAMSULOSIN [Concomitant]
  5. FINASTERIDE [Concomitant]
  6. MAXITROL [Concomitant]
  7. ACETAMINOPHEN [Concomitant]

REACTIONS (2)
  - HALLUCINATION [None]
  - NIGHTMARE [None]
